FAERS Safety Report 23986838 (Version 2)
Quarter: 2024Q4

REPORT INFORMATION
  Report Type: Spontaneous
  Country: US (occurrence: US)
  Receive Date: 20240618
  Receipt Date: 20241125
  Transmission Date: 20250114
  Serious: No
  Sender: PFIZER
  Company Number: US-PFIZER INC-202400194096

PATIENT
  Age: 67 Year
  Sex: Female

DRUGS (1)
  1. TUKYSA [Suspect]
     Active Substance: TUCATINIB
     Indication: Breast cancer
     Dosage: 150MG TAKE 2 TABS TWICE DAILY

REACTIONS (1)
  - Neoplasm progression [Unknown]
